FAERS Safety Report 7629058-3 (Version None)
Quarter: 2011Q3

REPORT INFORMATION
  Report Type: 
  Country: None (occurrence: None)
  Receive Date: 20110722
  Receipt Date: 20110718
  Transmission Date: 20111222
  Serious: Yes (Hospitalization)
  Sender: FDA-Public Use
  Company Number: US-EISAI INC-E7272-00104-CLI-US

PATIENT
  Sex: Male

DRUGS (18)
  1. COUMADIN [Concomitant]
     Indication: ANTICOAGULANT THERAPY
     Route: 048
     Dates: start: 20090401
  2. FUROSEMIDE [Concomitant]
  3. ONTAK [Suspect]
     Route: 041
     Dates: start: 20110329
  4. ACETAMINOPHEN [Concomitant]
     Indication: PREMEDICATION
     Route: 048
     Dates: start: 20110329
  5. LORATADINE [Concomitant]
     Indication: PREMEDICATION
     Route: 048
     Dates: start: 20110329
  6. DILTIAZEM [Concomitant]
     Indication: CARDIAC DISORDER
  7. CYCLOBENZAPRINE [Concomitant]
     Route: 048
     Dates: start: 20100401, end: 20110621
  8. DILTIAZEM [Concomitant]
     Indication: HYPERTENSION
     Route: 048
     Dates: start: 20090401
  9. POTASSIUM [Concomitant]
     Indication: HYPOKALAEMIA
     Route: 048
     Dates: start: 20090401
  10. MULTI-VITAMINS [Concomitant]
     Indication: VITAMIN SUPPLEMENTATION
     Route: 048
     Dates: start: 20010101
  11. OSTEO BI-FLEX [Concomitant]
     Indication: OSTEOARTHRITIS
     Route: 048
     Dates: start: 20080101
  12. METOPROLOL TARTRATE [Concomitant]
     Indication: HYPERTENSION
     Route: 048
     Dates: start: 19960101
  13. MULTI-VITAMINS [Concomitant]
     Indication: FATIGUE
  14. SODIUM CHLORIDE [Concomitant]
  15. FUROSEMIDE [Concomitant]
     Indication: HYPERTENSION
     Route: 048
     Dates: start: 20090401
  16. CLOBETASOL PROPIONATE [Concomitant]
     Indication: ECZEMA
     Route: 061
     Dates: start: 20090101
  17. DOCUSATE SODIUM [Concomitant]
     Indication: CONSTIPATION
     Route: 048
     Dates: start: 20101201
  18. SODIUM CHLORIDE [Concomitant]
     Route: 042
     Dates: start: 20110510

REACTIONS (2)
  - MENTAL STATUS CHANGES [None]
  - CELLULITIS [None]
